FAERS Safety Report 18453707 (Version 3)
Quarter: 2020Q4

REPORT INFORMATION
  Report Type: Spontaneous
  Country: US (occurrence: US)
  Receive Date: 20201102
  Receipt Date: 20201230
  Transmission Date: 20210114
  Serious: Yes (Other)
  Sender: FDA-Public Use
  Company Number: US-CHIESI USA, INC.-US-2020CHI000648

PATIENT

DRUGS (1)
  1. CUROSURF [Suspect]
     Active Substance: PORACTANT ALFA
     Indication: NEONATAL RESPIRATORY DISTRESS SYNDROME
     Dosage: 2.5 ML/KG, Q12H
     Route: 007
     Dates: start: 20201011, end: 20201011

REACTIONS (3)
  - Cyanosis neonatal [Recovered/Resolved]
  - Endotracheal intubation complication [Recovered/Resolved]
  - Product complaint [Recovered/Resolved]

NARRATIVE: CASE EVENT DATE: 20201011
